FAERS Safety Report 15883665 (Version 1)
Quarter: 2019Q1

REPORT INFORMATION
  Report Type: Spontaneous
  Country: US (occurrence: US)
  Receive Date: 20190107
  Receipt Date: 20190107
  Transmission Date: 20190417
  Serious: Yes (Death)
  Sender: FDA-Public Use
  Company Number: None

PATIENT
  Age: 90 Year
  Sex: Male

DRUGS (1)
  1. IMATINIB  MES TAB 400MG [Suspect]
     Active Substance: IMATINIB MESYLATE
     Dates: start: 2018

REACTIONS (1)
  - Death [None]

NARRATIVE: CASE EVENT DATE: 20190102
